FAERS Safety Report 6722714-0 (Version None)
Quarter: 2010Q2

REPORT INFORMATION
  Report Type: 
  Country: None (occurrence: None)
  Receive Date: 20100512
  Receipt Date: 20100505
  Transmission Date: 20101027
  Serious: Yes (Hospitalization, Other)
  Sender: FDA-Public Use
  Company Number: FR-GILEAD-2009-0020665

PATIENT
  Sex: Male
  Weight: 70 kg

DRUGS (15)
  1. HEPSERA [Suspect]
     Indication: HEPATITIS B
     Dates: start: 20020301, end: 20090923
  2. HEPSERA [Suspect]
     Indication: HEPATITIS C
  3. ANAFRANIL [Concomitant]
     Indication: DEPRESSION
  4. HEMIGOXINE [Concomitant]
     Indication: ARRHYTHMIA
  5. HEMIGOXINE [Concomitant]
     Indication: ATRIAL FIBRILLATION
  6. OMEXEL [Concomitant]
     Indication: BENIGN PROSTATIC HYPERPLASIA
  7. TARKA [Concomitant]
     Indication: HYPERTENSION
  8. TARKA [Concomitant]
     Indication: CARDIAC FAILURE
  9. LASIX [Concomitant]
     Indication: HYPERTENSION
  10. XANAX [Concomitant]
     Indication: ANXIETY
  11. KARDEGIC [Concomitant]
     Indication: ARTERIAL STENT INSERTION
  12. ACETAMINOPHEN AND CODEINE PHOSPHATE [Concomitant]
  13. ZEFFIX [Concomitant]
     Indication: HEPATITIS B
     Dates: start: 19970101
  14. ATARAX [Concomitant]
     Indication: INSOMNIA
  15. ENDOTHELON [Concomitant]
     Indication: VENOUS INSUFFICIENCY

REACTIONS (2)
  - FANCONI SYNDROME ACQUIRED [None]
  - RENAL FAILURE [None]
